FAERS Safety Report 4704603-6 (Version None)
Quarter: 2005Q2

REPORT INFORMATION
  Report Type: 
  Country: None (occurrence: None)
  Receive Date: 20050629
  Receipt Date: 20050620
  Transmission Date: 20051028
  Serious: Yes (Life-Threatening)
  Sender: FDA-Public Use
  Company Number: 05H-062-0300520-00

PATIENT
  Sex: Female
  Weight: 3.8 kg

DRUGS (3)
  1. NITROPRESS [Suspect]
     Indication: INCREASED VENTRICULAR AFTERLOAD
     Dosage: 0.2 - 2.5 MCG/KG PER MINUTE
  2. PROSTAGLANDIN E1 (ALPROSTADIL) [Concomitant]
  3. SODIUM THIOSULFATE (SODIUM THIOSULFATE) [Concomitant]

REACTIONS (4)
  - BLOOD CYANIDE INCREASED [None]
  - HYPERGLYCAEMIA [None]
  - LACTIC ACIDOSIS [None]
  - POISONING [None]
